FAERS Safety Report 7733359-8 (Version None)
Quarter: 2011Q3

REPORT INFORMATION
  Report Type: 
  Country: None (occurrence: None)
  Receive Date: 20110907
  Receipt Date: 20110901
  Transmission Date: 20111222
  Serious: Yes (Hospitalization)
  Sender: FDA-Public Use
  Company Number: US-BAYER-2011-054841

PATIENT
  Age: 66 Year
  Sex: Male

DRUGS (10)
  1. LACTULOSE [Concomitant]
  2. TRAMADOL HYDROCHLORIDE [Concomitant]
  3. RIFAXIMIN [Concomitant]
  4. NPH INSULIN [Concomitant]
     Indication: DIABETES MELLITUS
  5. NEXAVAR [Suspect]
     Indication: HEPATIC NEOPLASM MALIGNANT
     Dosage: 400 MG, BID
     Route: 048
     Dates: start: 20110121
  6. SPIRONOLACTONE [Concomitant]
  7. OMEPRAZOLE [Concomitant]
  8. METOPROLOL [Concomitant]
  9. FUROSEMIDE [Concomitant]
  10. MULTI-VITAMIN [Concomitant]

REACTIONS (1)
  - ASCITES [None]
